FAERS Safety Report 5424334-7 (Version None)
Quarter: 2007Q3

REPORT INFORMATION
  Report Type: 
  Country: None (occurrence: None)
  Receive Date: 20070822
  Receipt Date: 20070816
  Transmission Date: 20080115
  Serious: Yes (Other)
  Sender: FDA-Public Use
  Company Number: 200708AGG00698

PATIENT
  Age: 60 Year
  Sex: Female

DRUGS (1)
  1. AGGRASTAT (AGGRASTAT) (TIROFIBAN HCI) ) 0.25 MCG [Suspect]
     Dosage: INTRAVENOUS
     Route: 042

REACTIONS (1)
  - CARDIOGENIC SHOCK [None]
